FAERS Safety Report 10770089 (Version 1)
Quarter: 2015Q1

REPORT INFORMATION
  Report Type: Spontaneous
  Country: US (occurrence: None)
  Receive Date: 20150204
  Receipt Date: 20150204
  Transmission Date: 20150721
  Serious: Yes (Death)
  Sender: FDA-Public Use
  Company Number: 2724983

PATIENT
  Age: 39 Year
  Sex: Female

DRUGS (5)
  1. DIAZEPAM. [Suspect]
     Active Substance: DIAZEPAM
     Dates: start: 2013, end: 2013
  2. MORPHINE SULPHATE [Suspect]
     Active Substance: MORPHINE SULFATE
     Dates: start: 2013, end: 2013
  3. IMIPRAMINE [Suspect]
     Active Substance: IMIPRAMINE
     Dates: start: 2013, end: 2013
  4. PHENTERMINE [Suspect]
     Active Substance: PHENTERMINE
     Dates: start: 2013, end: 2013
  5. FENTANYL CITRATE. [Suspect]
     Active Substance: FENTANYL CITRATE
     Dates: start: 2013, end: 2013

REACTIONS (2)
  - Drug abuse [None]
  - Toxicity to various agents [None]

NARRATIVE: CASE EVENT DATE: 2013
